FAERS Safety Report 12381291 (Version 1)
Quarter: 2016Q2

REPORT INFORMATION
  Report Type: Spontaneous
  Country: US (occurrence: None)
  Receive Date: 20160517
  Receipt Date: 20160517
  Transmission Date: 20160815
  Serious: No
  Sender: FDA-Public Use
  Company Number: None

PATIENT
  Age: 85 Year
  Sex: Female
  Weight: 62.14 kg

DRUGS (8)
  1. LEVOTHYROXIN [Concomitant]
     Active Substance: LEVOTHYROXINE
  2. GLIPIZIDE. [Concomitant]
     Active Substance: GLIPIZIDE
  3. OCCUVITE [Concomitant]
  4. METOPROLOL. [Concomitant]
     Active Substance: METOPROLOL
  5. TARCEVA [Suspect]
     Active Substance: ERLOTINIB HYDROCHLORIDE
     Indication: SMALL CELL LUNG CANCER
     Dosage: 100MG 1 PILL ONCE A DAY ONCE A DAY BY MOUTH
     Route: 048
     Dates: start: 20160118
  6. VITAMIN E [Concomitant]
     Active Substance: .ALPHA.-TOCOPHEROL
  7. VITAMIN B12 [Concomitant]
     Active Substance: CYANOCOBALAMIN
  8. ASPIRIN. [Concomitant]
     Active Substance: ASPIRIN

REACTIONS (15)
  - Insomnia [None]
  - Dyspnoea [None]
  - Malaise [None]
  - Therapy cessation [None]
  - Vomiting [None]
  - Eye swelling [None]
  - Blindness [None]
  - Cough [None]
  - Diarrhoea [None]
  - Decreased appetite [None]
  - Gait disturbance [None]
  - Eye pain [None]
  - Asthenia [None]
  - Chills [None]
  - Abdominal pain upper [None]
